FAERS Safety Report 8602513-5 (Version None)
Quarter: 2012Q3

REPORT INFORMATION
  Report Type: 
  Country: None (occurrence: None)
  Receive Date: 20120817
  Receipt Date: 20120808
  Transmission Date: 20120928
  Serious: Yes (Other)
  Sender: FDA-Public Use
  Company Number: JP-UCBSA-057290

PATIENT
  Age: 25 Year
  Sex: Male

DRUGS (3)
  1. PROGRAF [Suspect]
     Dosage: UNKNOWN DOSE
  2. KEPPRA [Suspect]
     Dosage: UNKNOWN DOSE
     Route: 048
  3. CYCLOSPORINE [Concomitant]
     Dosage: UNKNOWN DOSE

REACTIONS (2)
  - GRAFT VERSUS HOST DISEASE [None]
  - HEPATIC FUNCTION ABNORMAL [None]
